FAERS Safety Report 20286394 (Version 1)
Quarter: 2022Q1

REPORT INFORMATION
  Report Type: Spontaneous
  Country: FR (occurrence: FR)
  Receive Date: 20220103
  Receipt Date: 20220103
  Transmission Date: 20220424
  Serious: Yes (Hospitalization, Congenital Anomaly, Other)
  Sender: FDA-Public Use
  Company Number: FR-ABBVIE-21K-056-4217426-00

PATIENT
  Sex: Female

DRUGS (2)
  1. VALPROATE SODIUM [Suspect]
     Active Substance: VALPROATE SODIUM
     Indication: Maternal exposure timing unspecified
     Route: 064
  2. FOLIC ACID [Concomitant]
     Active Substance: FOLIC ACID
     Indication: Maternal exposure timing unspecified
     Route: 064

REACTIONS (46)
  - Foot deformity [Unknown]
  - Visual impairment [Unknown]
  - Pectus excavatum [Unknown]
  - Joint hyperextension [Unknown]
  - Ligament laxity [Unknown]
  - Lung disorder [Unknown]
  - Speech disorder developmental [Unknown]
  - Dyspraxia [Unknown]
  - Educational problem [Unknown]
  - Social avoidant behaviour [Unknown]
  - Nasopharyngitis [Unknown]
  - Bronchiolitis [Unknown]
  - Laryngitis [Unknown]
  - Productive cough [Unknown]
  - Otitis externa [Unknown]
  - Ear pain [Unknown]
  - Ear infection [Unknown]
  - Myringitis [Unknown]
  - Meningitis [Unknown]
  - Pulmonary dysmaturity syndrome [Unknown]
  - Rachitic rosary [Unknown]
  - Speech disorder developmental [Unknown]
  - Eye disorder [Unknown]
  - Scoliosis [Unknown]
  - Hypermetropia [Unknown]
  - Talipes [Unknown]
  - Astigmatism [Unknown]
  - Asthenopia [Unknown]
  - Knee deformity [Unknown]
  - Talipes [Unknown]
  - Impaired reasoning [Unknown]
  - Cognitive disorder [Unknown]
  - Dysgraphia [Unknown]
  - Ear disorder [Unknown]
  - Nasal disorder [Unknown]
  - Pharyngeal disorder [Unknown]
  - Malaise [Unknown]
  - Disturbance in attention [Unknown]
  - Learning disorder [Unknown]
  - Otitis media [Unknown]
  - Pharyngitis [Unknown]
  - Bronchitis [Unknown]
  - Rhinitis [Unknown]
  - Bronchitis [Unknown]
  - Enuresis [Unknown]
  - Foetal exposure during pregnancy [Unknown]

NARRATIVE: CASE EVENT DATE: 20080719
